FAERS Safety Report 10046248 (Version 1)
Quarter: 2014Q1

REPORT INFORMATION
  Report Type: Spontaneous
  Country: US (occurrence: US)
  Receive Date: 20140331
  Receipt Date: 20140331
  Transmission Date: 20141002
  Serious: No
  Sender: FDA-Public Use
  Company Number: US-BIOGENIDEC-2014BI026548

PATIENT
  Age: 57 Year
  Sex: Male

DRUGS (4)
  1. TECFIDERA [Suspect]
     Indication: MULTIPLE SCLEROSIS
     Route: 048
     Dates: start: 201306
  2. VERAPAMIL [Concomitant]
  3. HYTRIN [Concomitant]
  4. AMPYRA [Concomitant]

REACTIONS (1)
  - Memory impairment [Unknown]
